FAERS Safety Report 14032219 (Version 2)
Quarter: 2017Q4

REPORT INFORMATION
  Report Type: Spontaneous
  Country: CN (occurrence: CN)
  Receive Date: 20171002
  Receipt Date: 20171011
  Transmission Date: 20180321
  Serious: Yes (Life-Threatening, Other)
  Sender: FDA-Public Use
  Company Number: CN-PFIZER INC-2017421776

PATIENT
  Age: 82 Year
  Sex: Female
  Weight: 40 kg

DRUGS (4)
  1. PHARMORUBICIN [Suspect]
     Active Substance: EPIRUBICIN
     Indication: NON-HODGKIN^S LYMPHOMA
     Dosage: 2 G, 1X/DAY
     Route: 041
     Dates: start: 20170618, end: 20170618
  2. GAINUO [Suspect]
     Active Substance: VINORELBINE TARTRATE
     Indication: NON-HODGKIN^S LYMPHOMA
     Dosage: 40 MG, 1X/DAY
     Route: 041
     Dates: start: 20170618, end: 20170618
  3. MABTHERA [Suspect]
     Active Substance: RITUXIMAB
     Indication: NON-HODGKIN^S LYMPHOMA
     Dosage: 0.5 G, 1X/DAY
     Route: 041
     Dates: start: 20170617, end: 20170617
  4. METHYLPREDNISOLONE SODIUM SUCCINATE. [Suspect]
     Active Substance: METHYLPREDNISOLONE SODIUM SUCCINATE
     Indication: NON-HODGKIN^S LYMPHOMA
     Dosage: 60 MG, 1X/DAY
     Route: 041
     Dates: start: 20170618, end: 20170622

REACTIONS (2)
  - Agranulocytosis [Recovering/Resolving]
  - Pyrexia [Recovering/Resolving]

NARRATIVE: CASE EVENT DATE: 20170624
